FAERS Safety Report 4368538-3 (Version None)
Quarter: 2004Q2

REPORT INFORMATION
  Report Type: 
  Country: None (occurrence: None)
  Receive Date: 20040602
  Receipt Date: 20040318
  Transmission Date: 20050107
  Serious: No
  Sender: FDA-Public Use
  Company Number: US-GLAXOSMITHKLINE-A0503448A

PATIENT
  Age: 3 Year
  Sex: Male

DRUGS (2)
  1. AUGMENTIN ES-600 [Suspect]
     Dosage: 1TSP TWICE PER DAY
     Route: 048
     Dates: start: 20040311, end: 20040318
  2. ZYRTEC [Concomitant]

REACTIONS (1)
  - TOOTH DISCOLOURATION [None]
